FAERS Safety Report 6987467-X (Version None)
Quarter: 2010Q3

REPORT INFORMATION
  Report Type: 
  Country: None (occurrence: None)
  Receive Date: 20100916
  Receipt Date: 20100907
  Transmission Date: 20110219
  Serious: Yes (Death, Hospitalization)
  Sender: FDA-Public Use
  Company Number: GB-BRISTOL-MYERS SQUIBB COMPANY-15244742

PATIENT
  Age: 73 Year
  Sex: Male
  Weight: 54 kg

DRUGS (27)
  1. CISPLATIN [Suspect]
     Indication: NON-SMALL CELL LUNG CANCER
     Dosage: INITIAL DOSE 116MG FROM 1JUL10-UNK DATE AGAIN FROM 22JUL10-22JUL10 (94MG);2ND+RECENT INF
     Route: 042
     Dates: start: 20100701, end: 20100722
  2. NECITUMUMAB [Suspect]
     Indication: NON-SMALL CELL LUNG CANCER
     Dosage: LIQUID 2ND+RECENT INF:22JUL2010(800MG). FROM01JUL10-UNK DATE AGAIN FROM 22JUL10-22JUL10
     Route: 042
     Dates: start: 20100701, end: 20100722
  3. ALIMTA [Suspect]
     Indication: NON-SMALL CELL LUNG CANCER
     Dosage: INITIAL DOSE:1JUL2010(775MG) FROM 1JUL10-UNK DATE AGAIN FROM 22JUL10-22JUL10(425MG);2ND+RECENT INF
     Route: 042
     Dates: start: 20100701, end: 20100722
  4. DEXAMETHASONE [Concomitant]
     Indication: NAUSEA
     Route: 065
     Dates: start: 20100603
  5. ACETAMINOPHEN [Concomitant]
     Indication: PAIN
     Route: 065
     Dates: start: 20100514
  6. ATROVENT [Concomitant]
     Indication: CHRONIC OBSTRUCTIVE PULMONARY DISEASE
     Route: 055
     Dates: start: 20100520
  7. BRICANYL [Concomitant]
     Indication: CHRONIC OBSTRUCTIVE PULMONARY DISEASE
     Dosage: WITH SODIUM CHLORIDE
     Route: 055
     Dates: start: 20100406
  8. NAPROXEN [Concomitant]
     Indication: PAIN
     Route: 065
     Dates: start: 20100608
  9. LANSOPRAZOLE [Concomitant]
     Route: 065
     Dates: start: 20100608
  10. CO-DYDRAMOL [Concomitant]
     Indication: PAIN
     Route: 065
     Dates: start: 20100608
  11. ENSURE [Concomitant]
     Indication: SUPPLEMENTATION THERAPY
     Dosage: 06184901
     Route: 065
     Dates: start: 20100708
  12. LACTULOSE [Concomitant]
     Indication: CONSTIPATION
     Route: 065
     Dates: start: 20100501
  13. SENNA [Concomitant]
     Indication: CONSTIPATION
     Route: 065
     Dates: start: 20100501
  14. ZOPICLONE [Concomitant]
     Indication: SEDATION
     Route: 065
     Dates: start: 20100519
  15. OXETACAINE [Concomitant]
     Indication: MUCOSAL INFLAMMATION
     Route: 065
     Dates: start: 20100710
  16. CO-DANTHRAMER [Concomitant]
     Indication: CONSTIPATION
     Route: 065
     Dates: start: 20100710, end: 20100711
  17. FLUCONAZOLE [Concomitant]
     Indication: MOUTH ULCERATION
     Route: 065
     Dates: start: 20100712, end: 20100718
  18. CARBOCYSTEINE [Concomitant]
     Indication: PRODUCTIVE COUGH
     Route: 065
     Dates: start: 20100715
  19. DIFFLAM [Concomitant]
     Indication: MOUTH ULCERATION
     Dosage: MOUTHWASH
     Route: 065
     Dates: start: 20100708
  20. CIPROFLOXACIN [Concomitant]
     Indication: MUCOSAL INFLAMMATION
     Route: 065
     Dates: start: 20100709, end: 20100714
  21. GLYCERIN [Concomitant]
     Indication: CONSTIPATION
     Route: 065
     Dates: start: 20100711, end: 20100711
  22. SALINE [Concomitant]
     Indication: CHRONIC OBSTRUCTIVE PULMONARY DISEASE
     Route: 065
     Dates: start: 20100712
  23. ORAMORPH SR [Concomitant]
     Indication: PAIN
     Dosage: LIQUID
     Route: 065
     Dates: start: 20100708
  24. DIHYDROCODEINE BITARTRATE INJ [Concomitant]
     Indication: PAIN
     Route: 065
     Dates: start: 20100708
  25. VITAMIN TAB [Concomitant]
     Indication: SUPPLEMENTATION THERAPY
     Route: 065
     Dates: start: 20100714
  26. FOLIC ACID [Concomitant]
  27. VITAMIN B-12 [Concomitant]

REACTIONS (3)
  - INTESTINAL PERFORATION [None]
  - MALIGNANT NEOPLASM PROGRESSION [None]
  - PERITONITIS [None]
